FAERS Safety Report 8829354 (Version 3)
Quarter: 2014Q1

REPORT INFORMATION
  Report Type: Spontaneous
  Country: GB (occurrence: GB)
  Receive Date: 20121008
  Receipt Date: 20140219
  Transmission Date: 20141002
  Serious: Yes (Hospitalization, Other)
  Sender: FDA-Public Use
  Company Number: GB-VERTEX PHARMACEUTICAL INC.-2012-022526

PATIENT
  Age: 61 Year
  Sex: Male
  Weight: 73 kg

DRUGS (19)
  1. INCIVO [Suspect]
     Indication: CHRONIC HEPATITIS C
     Dosage: 750 MG, TID
     Route: 048
     Dates: start: 20120919, end: 20120926
  2. RIBAVIRIN [Suspect]
     Indication: CHRONIC HEPATITIS C
     Dosage: DOSAGE FORM: UNSPECIFIED
     Route: 048
     Dates: start: 20120919, end: 20120926
  3. PEG INTERFERON [Suspect]
     Indication: CHRONIC HEPATITIS C
     Dosage: DOSAGE FORM: UNSPECIFIED
     Route: 058
     Dates: start: 20120919, end: 20120926
  4. GABAPENTIN [Concomitant]
     Dosage: DOSAGE FORM: UNSPECIFIED
     Route: 065
  5. GABAPENTIN [Concomitant]
     Dosage: AT BEDTIME
     Route: 065
  6. AMITRIPTYLINE [Concomitant]
     Dosage: 25 MG, AT BED TIME
  7. ASPIRIN [Concomitant]
     Dosage: DOSAGE FORM: UNSPECIFIED
     Route: 065
  8. BISOPROLOL [Concomitant]
     Dosage: DOSAGE FORM: UNSPECIFIED
     Route: 065
  9. FOLIC ACID [Concomitant]
     Dosage: DOSAGE FORM: UNSPECIFIED
     Route: 065
  10. OMEPRAZOLE [Concomitant]
     Dosage: DOSAGE FORM: UNSPECIFIED
     Route: 065
  11. QUININE SULPHATE [Concomitant]
     Dosage: 300 MG, HOUR OF SLEEP
     Route: 065
  12. RAMIPRIL [Concomitant]
     Dosage: DOSAGE FORM: UNSPECIFIED
     Route: 065
  13. SALBUTAMOL [Concomitant]
     Dosage: DOSAGE FORM: UNSPECIFIED
     Route: 055
  14. TIOTROPIUM [Concomitant]
     Dosage: DOSAGE FORM: UNSPECIFIED
     Route: 055
  15. ADCAL [Concomitant]
     Dosage: DOSAGE FORM: TABLET
     Route: 048
  16. PREDNISOLONE [Concomitant]
     Dosage: DOSAGE FORM: UNSPECIFIED
     Route: 065
  17. BUPRENORPHINE [Concomitant]
     Dosage: DOSAGE FORM: PATCH: EVERY 96 HOUR
     Route: 065
  18. BUPRENORPHINE [Concomitant]
     Dosage: 400 MG, QID
  19. FLUCLOXACILLIN [Concomitant]
     Dosage: DOSAGE FORM: UNSPECIFIED
     Route: 065

REACTIONS (2)
  - Cellulitis [Recovered/Resolved]
  - Bursitis [Unknown]
